FAERS Safety Report 15284780 (Version 1)
Quarter: 2018Q3

REPORT INFORMATION
  Report Type: Report from Study
  Country: US (occurrence: US)
  Receive Date: 20180816
  Receipt Date: 20180816
  Transmission Date: 20181010
  Serious: Yes (Death, Hospitalization)
  Sender: FDA-Public Use
  Company Number: US-BAYER-2018-153867

PATIENT
  Age: 75 Year
  Sex: Male
  Weight: 121.1 kg

DRUGS (6)
  1. ADEMPAS [Suspect]
     Active Substance: RIOCIGUAT
     Indication: PULMONARY ARTERIAL HYPERTENSION
     Dosage: 2.5 MG, TID
     Route: 048
  2. OPSUMIT [Concomitant]
     Active Substance: MACITENTAN
     Dosage: UNK
  3. ADEMPAS [Suspect]
     Active Substance: RIOCIGUAT
     Indication: PULMONARY ARTERIAL HYPERTENSION
     Dosage: UNK
     Route: 048
     Dates: start: 20170712
  4. REMODULIN [Concomitant]
     Active Substance: TREPROSTINIL
     Dosage: UNK
  5. TYVASO [Concomitant]
     Active Substance: TREPROSTINIL
     Dosage: UNK
  6. XARELTO [Concomitant]
     Active Substance: RIVAROXABAN
     Dosage: UNK

REACTIONS (3)
  - Renal failure [Unknown]
  - Death [Fatal]
  - Atrial fibrillation [Unknown]

NARRATIVE: CASE EVENT DATE: 20180811
